FAERS Safety Report 11593560 (Version 1)
Quarter: 2015Q4

REPORT INFORMATION
  Report Type: Report from Study
  Country: US (occurrence: US)
  Receive Date: 20151005
  Receipt Date: 20151005
  Transmission Date: 20160304
  Serious: Yes (Other)
  Sender: FDA-Public Use
  Company Number: US-BAXTER-2015BAX053276

PATIENT
  Age: 82 Year

DRUGS (1)
  1. CYTOXAN [Suspect]
     Active Substance: CYCLOPHOSPHAMIDE
     Indication: CHRONIC LYMPHOCYTIC LEUKAEMIA
     Route: 048
     Dates: start: 20110526

REACTIONS (2)
  - Squamous cell carcinoma of skin [Unknown]
  - Basosquamous carcinoma of skin [Unknown]

NARRATIVE: CASE EVENT DATE: 20120808
